FAERS Safety Report 5141420-X (Version None)
Quarter: 2006Q4

REPORT INFORMATION
  Report Type: 
  Country: None (occurrence: None)
  Receive Date: 20061026
  Receipt Date: 20061015
  Transmission Date: 20070319
  Serious: Yes (Other)
  Sender: FDA-Public Use
  Company Number: 2006126711

PATIENT
  Age: 58 Year
  Sex: Female
  Weight: 48.9885 kg

DRUGS (9)
  1. DILANTIN [Suspect]
     Indication: CONVULSION
     Dosage: 400 MG (200 MG, 2 IN 1 D), ORAL
     Route: 048
  2. LYRICA [Suspect]
     Indication: NERVE INJURY
     Dosage: 75 MG (75 MG, 1 IN 1 D), ORAL
     Route: 048
     Dates: start: 20061013
  3. LYRICA [Suspect]
     Indication: PAIN
     Dosage: 75 MG (75 MG, 1 IN 1 D), ORAL
     Route: 048
     Dates: start: 20061013
  4. TRIMETHOPRIM [Concomitant]
  5. DYAZIDE [Concomitant]
  6. LOTREL [Concomitant]
  7. VERAPAMIL - SLOW RELEASE (VERAPAMIL HYDROCHLORIDE) [Concomitant]
  8. EMBOLEX (DIHYDROERGOTAMINE MESILATE, HEPARIN) [Concomitant]
  9. LANOXIN [Concomitant]

REACTIONS (7)
  - ADHESION [None]
  - BALANCE DISORDER [None]
  - DIZZINESS [None]
  - HEAD DISCOMFORT [None]
  - INTERVERTEBRAL DISC PROTRUSION [None]
  - NERVE INJURY [None]
  - THROMBOSIS [None]
